FAERS Safety Report 25789379 (Version 2)
Quarter: 2025Q3

REPORT INFORMATION
  Report Type: Spontaneous
  Country: CA (occurrence: CA)
  Receive Date: 20250911
  Receipt Date: 20250918
  Transmission Date: 20251020
  Serious: Yes (Death)
  Sender: ROCHE
  Company Number: CA-002147023-NVSC2025CA139529

PATIENT
  Age: 66 Year
  Sex: Male

DRUGS (1)
  1. LUCENTIS [Suspect]
     Active Substance: RANIBIZUMAB
     Indication: Diabetic retinal oedema
     Dosage: 10 MILLIGRAM PER MILLILITRE
     Route: 050
     Dates: start: 20160125, end: 20250829

REACTIONS (1)
  - Diabetic complication [Fatal]

NARRATIVE: CASE EVENT DATE: 20250830
